FAERS Safety Report 20663023 (Version 1)
Quarter: 2022Q2

REPORT INFORMATION
  Report Type: Spontaneous
  Country: US (occurrence: None)
  Receive Date: 20220401
  Receipt Date: 20220401
  Transmission Date: 20220721
  Serious: Yes (Other)
  Sender: FDA-Public Use
  Company Number: US-MLMSERVICE-20220318-3444031-1

PATIENT
  Age: 16 Year
  Sex: Female

DRUGS (2)
  1. CODEINE [Suspect]
     Active Substance: CODEINE
     Indication: Infection
     Dosage: UNKNOWN
     Route: 065
  2. CODEINE [Suspect]
     Active Substance: CODEINE
     Indication: Trismus

REACTIONS (5)
  - Mast cell activation syndrome [Unknown]
  - Condition aggravated [Unknown]
  - Asthenia [Unknown]
  - Amnesia [Unknown]
  - Drug ineffective [Unknown]
